FAERS Safety Report 7247308-2 (Version None)
Quarter: 2011Q1

REPORT INFORMATION
  Report Type: 
  Country: None (occurrence: None)
  Receive Date: 20110127
  Receipt Date: 20110125
  Transmission Date: 20110831
  Serious: Yes (Hospitalization)
  Sender: FDA-Public Use
  Company Number: B0691972A

PATIENT
  Sex: Male

DRUGS (12)
  1. FLAGYL [Suspect]
     Dosage: 500MG THREE TIMES PER DAY
     Route: 048
     Dates: start: 20100928, end: 20101014
  2. NEXIUM [Concomitant]
     Route: 065
  3. OFLOCET [Suspect]
     Dosage: 200MG TWICE PER DAY
     Route: 048
     Dates: start: 20100927, end: 20100928
  4. FLAGYL [Suspect]
     Dosage: 1UNIT THREE TIMES PER DAY
     Route: 042
     Dates: start: 20100927, end: 20100927
  5. LASIX [Concomitant]
     Route: 065
  6. KARDEGIC [Concomitant]
     Route: 065
  7. TAVANIC [Suspect]
     Dosage: 500MG PER DAY
     Route: 048
     Dates: start: 20100929, end: 20101014
  8. TRIATEC [Concomitant]
     Route: 065
  9. STILNOX [Concomitant]
     Route: 065
  10. AUGMENTIN '125' [Suspect]
     Route: 065
     Dates: start: 20100925, end: 20100927
  11. DOLIPRANE [Concomitant]
     Route: 065
  12. MONOTILDIEM LP [Concomitant]
     Route: 065

REACTIONS (4)
  - ABDOMINAL PAIN [None]
  - HEPATITIS CHOLESTATIC [None]
  - HEPATOCELLULAR INJURY [None]
  - VOMITING [None]
